FAERS Safety Report 25048095 (Version 1)
Quarter: 2025Q1

REPORT INFORMATION
  Report Type: Report from Study
  Country: US (occurrence: US)
  Receive Date: 20250306
  Receipt Date: 20250306
  Transmission Date: 20250408
  Serious: No
  Sender: SANDOZ
  Company Number: US-SANDOZ-SDZ2025US013329

PATIENT
  Sex: Male

DRUGS (2)
  1. OMNITROPE [Suspect]
     Active Substance: SOMATROPIN
     Indication: Short stature
     Dosage: 0.22 ML, QD (1.3 MG/ML POWDER AND SOLVENT FOR SOLUTION FOR INJECTION)
     Route: 058
  2. OMNITROPE [Suspect]
     Active Substance: SOMATROPIN
     Indication: Short stature
     Dosage: 0.22 ML, QD (1.3 MG/ML POWDER AND SOLVENT FOR SOLUTION FOR INJECTION)
     Route: 058

REACTIONS (1)
  - Injection site swelling [Unknown]
